FAERS Safety Report 10027208 (Version 1)
Quarter: 2014Q1

REPORT INFORMATION
  Report Type: Spontaneous
  Country: GB (occurrence: None)
  Receive Date: 20140318
  Receipt Date: 20140318
  Transmission Date: 20141002
  Serious: Yes (Hospitalization)
  Sender: FDA-Public Use
  Company Number: AUR-APL-2014-02666

PATIENT
  Age: 21 Year
  Sex: Male

DRUGS (2)
  1. RISPERIDONE (RISPERIDONE) [Suspect]
     Indication: AFFECTIVE DISORDER
     Route: 048
     Dates: start: 201310, end: 20140206
  2. SERTRALINE (SERTRALINE) [Concomitant]

REACTIONS (2)
  - Ischaemic stroke [None]
  - Arteriovenous malformation [None]
